FAERS Safety Report 13909850 (Version 2)
Quarter: 2019Q1

REPORT INFORMATION
  Report Type: Spontaneous
  Country: US (occurrence: US)
  Receive Date: 20170828
  Receipt Date: 20190228
  Transmission Date: 20190417
  Serious: Yes (Death, Hospitalization, Other)
  Sender: FDA-Public Use
  Company Number: US-ASTELLAS-2017US033546

PATIENT
  Age: 63 Year
  Sex: Male

DRUGS (2)
  1. TACROLIMUS. [Suspect]
     Active Substance: TACROLIMUS
     Indication: HEART TRANSPLANT
     Route: 065
     Dates: start: 2016, end: 201609
  2. PREDNISONE. [Suspect]
     Active Substance: PREDNISONE
     Indication: HEART TRANSPLANT
     Route: 065
     Dates: start: 2016

REACTIONS (4)
  - Kaposi^s sarcoma [Unknown]
  - Pulmonary oedema [Recovering/Resolving]
  - Primary effusion lymphoma [Unknown]
  - Human herpesvirus 8 infection [Recovered/Resolved]

NARRATIVE: CASE EVENT DATE: 2016
